FAERS Safety Report 10043733 (Version 1)
Quarter: 2014Q1

REPORT INFORMATION
  Report Type: Spontaneous
  Country: US (occurrence: None)
  Receive Date: 20140327
  Receipt Date: 20140327
  Transmission Date: 20141002
  Serious: Yes (Hospitalization)
  Sender: FDA-Public Use
  Company Number: None

PATIENT
  Age: 78 Year
  Sex: Male
  Weight: 75.4 kg

DRUGS (3)
  1. CAPECITABINE [Suspect]
  2. BENAZEPRIL [Concomitant]
  3. SIMVASTATIN [Concomitant]

REACTIONS (11)
  - Diarrhoea [None]
  - Rectal tenesmus [None]
  - Diarrhoea [None]
  - Fatigue [None]
  - Decreased appetite [None]
  - Performance status decreased [None]
  - Palpitations [None]
  - Nausea [None]
  - Vomiting [None]
  - Dehydration [None]
  - Ileus [None]
